FAERS Safety Report 13159617 (Version 1)
Quarter: 2017Q1

REPORT INFORMATION
  Report Type: Spontaneous
  Country: IT (occurrence: IT)
  Receive Date: 20170127
  Receipt Date: 20170127
  Transmission Date: 20170428
  Serious: Yes (Death)
  Sender: FDA-Public Use
  Company Number: IT-TEVA-733102ACC

PATIENT
  Age: 65 Year
  Sex: Male

DRUGS (1)
  1. DULOXETINE. [Suspect]
     Active Substance: DULOXETINE
     Indication: PRODUCT USED FOR UNKNOWN INDICATION
     Dosage: 26 DOSAGE FORMS DAILY;
     Route: 048

REACTIONS (4)
  - Toxicity to various agents [Fatal]
  - Arrhythmia [Fatal]
  - Overdose [Fatal]
  - Unresponsive to stimuli [Fatal]
